FAERS Safety Report 11703543 (Version 1)
Quarter: 2015Q4

REPORT INFORMATION
  Report Type: Spontaneous
  Country: HU (occurrence: HU)
  Receive Date: 20151105
  Receipt Date: 20151105
  Transmission Date: 20160304
  Serious: Yes (Death, Other)
  Sender: FDA-Public Use
  Company Number: HU-BRISTOL-MYERS SQUIBB COMPANY-BMS-2015-074744

PATIENT
  Sex: Male

DRUGS (1)
  1. OPDIVO [Suspect]
     Active Substance: NIVOLUMAB
     Indication: METASTATIC OCULAR MELANOMA
     Dosage: 3 MG/KG, QCYCLE
     Route: 065
     Dates: start: 20151001

REACTIONS (2)
  - Jaundice [Fatal]
  - Death [Fatal]

NARRATIVE: CASE EVENT DATE: 20151025
